FAERS Safety Report 7308688-2 (Version None)
Quarter: 2011Q1

REPORT INFORMATION
  Report Type: 
  Country: None (occurrence: None)
  Receive Date: 20110223
  Receipt Date: 20110209
  Transmission Date: 20110831
  Serious: Yes (Hospitalization)
  Sender: FDA-Public Use
  Company Number: PHHY2011FR03819

PATIENT
  Sex: Female

DRUGS (9)
  1. DUPHALAC [Concomitant]
     Dosage: UNK
  2. TAHOR [Concomitant]
     Dosage: UNK
  3. LEVOTHYROX [Concomitant]
     Dosage: 75 UG, DAILY
  4. TANGANIL [Concomitant]
     Dosage: UNK
  5. ESCITALOPRAM [Concomitant]
     Indication: MAJOR DEPRESSION
     Dosage: 10 MG, DAILY
  6. LEPONEX [Suspect]
     Dosage: 100 MG, DAILY IN EVENING
     Route: 048
     Dates: start: 20101104, end: 20101222
  7. LEPONEX [Suspect]
     Indication: MAJOR DEPRESSION
     Dosage: 100 MG, DAILY FOR SEVERAL WEEKS
     Route: 048
     Dates: end: 20101103
  8. ATARAX [Concomitant]
     Dosage: UNK
  9. TOBRADEX [Concomitant]
     Dosage: UNK

REACTIONS (8)
  - SPINAL OSTEOARTHRITIS [None]
  - NEUTROPENIA [None]
  - EXTRAPYRAMIDAL DISORDER [None]
  - TREMOR [None]
  - BACK PAIN [None]
  - DYSARTHRIA [None]
  - HYPERTONIA [None]
  - WHITE BLOOD CELL COUNT DECREASED [None]
